FAERS Safety Report 11791456 (Version 2)
Quarter: 2015Q4

REPORT INFORMATION
  Report Type: Spontaneous
  Country: US (occurrence: US)
  Receive Date: 20151201
  Receipt Date: 20151214
  Transmission Date: 20160305
  Serious: Yes (Death)
  Sender: FDA-Public Use
  Company Number: US-UNITED THERAPEUTICS-UNT-2015-013053

PATIENT
  Age: 72 Year
  Sex: Female
  Weight: 58.5 kg

DRUGS (3)
  1. OFEV [Concomitant]
     Active Substance: NINTEDANIB
     Indication: PRODUCT USED FOR UNKNOWN INDICATION
  2. TYVASO [Suspect]
     Active Substance: TREPROSTINIL
     Indication: PULMONARY ARTERIAL HYPERTENSION
     Dosage: 12-54 MICROGRAMS, QID
     Dates: start: 20151005
  3. TYVASO [Suspect]
     Active Substance: TREPROSTINIL
     Dosage: 12-54 MICROGRAMS, QID

REACTIONS (10)
  - Nausea [Unknown]
  - Rash erythematous [Unknown]
  - General physical health deterioration [Fatal]
  - Fluid retention [Unknown]
  - Cough [Unknown]
  - Decreased appetite [Unknown]
  - Malaise [Unknown]
  - Vomiting [Unknown]
  - Drug intolerance [Unknown]
  - Oedema peripheral [Unknown]

NARRATIVE: CASE EVENT DATE: 201510
